FAERS Safety Report 8296599-8 (Version None)
Quarter: 2012Q2

REPORT INFORMATION
  Report Type: 
  Country: None (occurrence: None)
  Receive Date: 20120418
  Receipt Date: 20120418
  Transmission Date: 20120825
  Serious: Yes (Life-Threatening, Hospitalization)
  Sender: FDA-Public Use
  Company Number: None

PATIENT
  Age: 82 Year
  Sex: Male

DRUGS (2)
  1. PRADAXA [Suspect]
  2. ASPIRIN [Concomitant]
     Route: 048

REACTIONS (4)
  - FACE INJURY [None]
  - FALL [None]
  - SUBDURAL HAEMATOMA [None]
  - EPISTAXIS [None]
